FAERS Safety Report 16367243 (Version 1)
Quarter: 2019Q2

REPORT INFORMATION
  Report Type: Spontaneous
  Country: US (occurrence: US)
  Receive Date: 20190529
  Receipt Date: 20190529
  Transmission Date: 20190711
  Serious: No
  Sender: FDA-Public Use
  Company Number: US-BAYER-2019-102615

PATIENT
  Age: 60 Year
  Sex: Female
  Weight: 83 kg

DRUGS (7)
  1. CLARITIN LIQUI-GELS [Suspect]
     Active Substance: LORATADINE
     Route: 048
     Dates: start: 20190523
  2. VITAMIN D3 [Concomitant]
     Active Substance: CHOLECALCIFEROL
  3. CRANBERRY EXTRAKT [Concomitant]
  4. BAYER LOW DOSE [Suspect]
     Active Substance: ASPIRIN
  5. RED YEAST RICE [Concomitant]
     Active Substance: DIETARY SUPPLEMENT
  6. LOSARTAN. [Concomitant]
     Active Substance: LOSARTAN
  7. COQ10 [UBIDECARENONE] [Concomitant]
     Active Substance: UBIDECARENONE

REACTIONS (1)
  - Extra dose administered [Unknown]

NARRATIVE: CASE EVENT DATE: 20190523
